FAERS Safety Report 18311819 (Version 1)
Quarter: 2020Q3

REPORT INFORMATION
  Report Type: Spontaneous
  Country: GB (occurrence: GB)
  Receive Date: 20200925
  Receipt Date: 20200925
  Transmission Date: 20201103
  Serious: Yes (Hospitalization)
  Sender: FDA-Public Use
  Company Number: GB-ALNYLAM PHARMACEUTICALS, INC.-ALN-2020-001703

PATIENT

DRUGS (1)
  1. ONPATTRO [Suspect]
     Active Substance: PATISIRAN SODIUM
     Indication: HEREDITARY NEUROPATHIC AMYLOIDOSIS
     Dosage: 17 MILLIGRAM, Q3W
     Route: 042
     Dates: start: 2020

REACTIONS (3)
  - Vomiting [Unknown]
  - Hypertension [Unknown]
  - Dehydration [Unknown]

NARRATIVE: CASE EVENT DATE: 202009
